FAERS Safety Report 21801362 (Version 2)
Quarter: 2023Q1

REPORT INFORMATION
  Report Type: Spontaneous
  Country: DE (occurrence: DE)
  Receive Date: 20221230
  Receipt Date: 20230110
  Transmission Date: 20230417
  Serious: Yes (Other)
  Sender: FDA-Public Use
  Company Number: DE-KYOWAKIRIN-2022BKK019792

PATIENT

DRUGS (10)
  1. CRYSVITA [Suspect]
     Active Substance: BUROSUMAB-TWZA
     Indication: Hereditary hypophosphataemic rickets
     Dosage: 35 MG, 1X/2 WEEKS (EQUIVALENT TO 2 MG/KG)
     Route: 058
     Dates: start: 201705
  2. CRYSVITA [Suspect]
     Active Substance: BUROSUMAB-TWZA
     Dosage: UNK
     Route: 058
     Dates: start: 20171122
  3. CRYSVITA [Suspect]
     Active Substance: BUROSUMAB-TWZA
     Dosage: 20 MG, 1X/2 WEEKS (INCREASE TO 20 MG S.C. (= 1.5 MG/KG))
     Route: 058
     Dates: start: 201802
  4. CRYSVITA [Suspect]
     Active Substance: BUROSUMAB-TWZA
     Dosage: 25 MG, 1X/2 WEEKS (INCREASE TO 25 MG S.C. (= 1.7 MG/KG))
     Route: 058
     Dates: start: 201907
  5. CRYSVITA [Suspect]
     Active Substance: BUROSUMAB-TWZA
     Dosage: 30 MG, 1X/2 WEEKS (INCREASE TO 30 MG S.C. (= 2 MG/KG))
     Route: 058
     Dates: start: 202002
  6. CRYSVITA [Suspect]
     Active Substance: BUROSUMAB-TWZA
     Dosage: 35 MG, 1X/2 WEEKS (INCREASE TO 35 MG S.C. (= 2 MG/KG))
     Route: 058
     Dates: start: 202201
  7. CRYSVITA [Suspect]
     Active Substance: BUROSUMAB-TWZA
     Dosage: UNK
     Route: 058
     Dates: start: 20221208
  8. CRYSVITA [Suspect]
     Active Substance: BUROSUMAB-TWZA
     Dosage: 10 MG
     Route: 058
  9. ROCALTROL [Concomitant]
     Active Substance: CALCITRIOL
     Indication: Product used for unknown indication
     Dosage: 50 NANOGRAM PER KILOGRAMKG
     Route: 065
     Dates: start: 2016, end: 201712
  10. SODIUM GLYCEROPHOSPHATE [Concomitant]
     Active Substance: SODIUM GLYCEROPHOSPHATE
     Indication: Product used for unknown indication
     Dosage: 40 MG/KGKG
     Route: 065
     Dates: start: 2016, end: 201712

REACTIONS (12)
  - Intracranial pressure increased [Unknown]
  - Otitis media chronic [Unknown]
  - Nervous system disorder [Unknown]
  - Tooth injury [Unknown]
  - Visual impairment [Unknown]
  - Stress [Unknown]
  - Otitis externa [Unknown]
  - Nausea [Unknown]
  - Headache [Unknown]
  - Abdominal pain [Unknown]
  - Drug ineffective [Unknown]
  - Product use issue [Unknown]

NARRATIVE: CASE EVENT DATE: 20190401
